FAERS Safety Report 15220724 (Version 1)
Quarter: 2018Q3

REPORT INFORMATION
  Report Type: Spontaneous
  Country: DE (occurrence: DE)
  Receive Date: 20180731
  Receipt Date: 20180731
  Transmission Date: 20181010
  Serious: Yes (Other)
  Sender: FDA-Public Use
  Company Number: DE-BAYER-2018-138043

PATIENT
  Sex: Male

DRUGS (4)
  1. MAGNEVIST [Suspect]
     Active Substance: GADOPENTETATE DIMEGLUMINE
     Indication: DYSARTHRIA
  2. MAGNEVIST [Suspect]
     Active Substance: GADOPENTETATE DIMEGLUMINE
     Indication: APHASIA
  3. GADOVIST [Suspect]
     Active Substance: GADOBUTROL
     Indication: NUCLEAR MAGNETIC RESONANCE IMAGING BRAIN
     Dosage: 8 ML, ONCE, IN ORDER TO CONFIRM THE DIAGNOSIS OF THE FIRST MRI;
     Route: 042
     Dates: start: 201312
  4. MAGNEVIST [Suspect]
     Active Substance: GADOPENTETATE DIMEGLUMINE
     Indication: NUCLEAR MAGNETIC RESONANCE IMAGING BRAIN
     Dosage: 20 ML, ONCE
     Route: 042
     Dates: start: 2013

REACTIONS (15)
  - Balance disorder [None]
  - Fatigue [None]
  - Influenza [Not Recovered/Not Resolved]
  - Dyspnoea [None]
  - Arthralgia [Not Recovered/Not Resolved]
  - Coordination abnormal [None]
  - Dyspnoea [Not Recovered/Not Resolved]
  - Circulatory collapse [None]
  - Orthostatic intolerance [None]
  - Pain [None]
  - Contrast media reaction [Not Recovered/Not Resolved]
  - Fatigue [Not Recovered/Not Resolved]
  - Bone pain [Not Recovered/Not Resolved]
  - Myalgia [Not Recovered/Not Resolved]
  - Muscle fatigue [None]

NARRATIVE: CASE EVENT DATE: 201310
